FAERS Safety Report 5893795-1 (Version None)
Quarter: 2008Q3

REPORT INFORMATION
  Report Type: 
  Country: None (occurrence: None)
  Receive Date: 20080923
  Receipt Date: 20080910
  Transmission Date: 20090109
  Serious: Yes (Other)
  Sender: FDA-Public Use
  Company Number: US-ELI_LILLY_AND_COMPANY-US200809002473

PATIENT
  Sex: Male

DRUGS (2)
  1. HUMATROPE [Suspect]
     Indication: GROWTH RETARDATION
     Dosage: UNK, UNKNOWN
     Dates: start: 20030101
  2. HUMATROPE [Suspect]
     Dosage: UNK, UNKNOWN

REACTIONS (11)
  - BENIGN INTRACRANIAL HYPERTENSION [None]
  - COLD SWEAT [None]
  - CONVULSION [None]
  - INFLUENZA LIKE ILLNESS [None]
  - LETHARGY [None]
  - MIGRAINE [None]
  - PHARMACEUTICAL PRODUCT COMPLAINT [None]
  - REACTION TO DRUG EXCIPIENTS [None]
  - SWOLLEN TONGUE [None]
  - THROAT TIGHTNESS [None]
  - WEIGHT DECREASED [None]
